FAERS Safety Report 5194533-0 (Version None)
Quarter: 2006Q4

REPORT INFORMATION
  Report Type: 
  Country: None (occurrence: None)
  Receive Date: 20061222
  Receipt Date: 20060919
  Transmission Date: 20070319
  Serious: Yes (Death)
  Sender: FDA-Public Use
  Company Number: ENTC2006-0283

PATIENT
  Age: 68 Year
  Sex: Male

DRUGS (9)
  1. STALEVO 100 [Suspect]
     Indication: PARKINSON'S DISEASE
     Dosage: 25/10/200 MG ORAL
     Route: 048
     Dates: start: 20040901
  2. TOFRANIL [Suspect]
  3. PARLODEL [Suspect]
  4. CAPTOPRIL [Concomitant]
  5. SIFROL [Concomitant]
  6. TELMISARTAN [Concomitant]
  7. LEXOTAN [Concomitant]
  8. RANITIDINE [Concomitant]
  9. AKINETON [Concomitant]

REACTIONS (1)
  - DEATH [None]
